FAERS Safety Report 7527796-4 (Version None)
Quarter: 2011Q2

REPORT INFORMATION
  Report Type: 
  Country: None (occurrence: None)
  Receive Date: 20110607
  Receipt Date: 20110601
  Transmission Date: 20111010
  Serious: Yes (Other)
  Sender: FDA-Public Use
  Company Number: US-PFIZER INC-2011119295

PATIENT
  Sex: Female
  Weight: 73 kg

DRUGS (1)
  1. DEPO-PROVERA [Suspect]
     Indication: CONTRACEPTION
     Dosage: 150 MG, UNK
     Dates: start: 20101214

REACTIONS (15)
  - VITAMIN D DEFICIENCY [None]
  - WEIGHT INCREASED [None]
  - FEELING COLD [None]
  - DEPRESSION [None]
  - ANXIETY [None]
  - ASTHENIA [None]
  - CONSTIPATION [None]
  - ARTHRALGIA [None]
  - HOT FLUSH [None]
  - COELIAC DISEASE [None]
  - HYPOTHYROIDISM [None]
  - MOOD SWINGS [None]
  - FATIGUE [None]
  - BLOOD CORTISOL DECREASED [None]
  - PAIN [None]
